FAERS Safety Report 20357612 (Version 1)
Quarter: 2022Q1

REPORT INFORMATION
  Report Type: Spontaneous
  Country: US (occurrence: US)
  Receive Date: 20220120
  Receipt Date: 20220120
  Transmission Date: 20220423
  Serious: No
  Sender: FDA-Public Use
  Company Number: US-NOVOPROD-837353

PATIENT
  Age: 72 Year
  Sex: Male

DRUGS (2)
  1. OZEMPIC [Suspect]
     Active Substance: SEMAGLUTIDE
     Indication: Product used for unknown indication
     Dosage: 0.25 MG, QW
     Route: 058
     Dates: start: 2021, end: 202105
  2. OZEMPIC [Suspect]
     Active Substance: SEMAGLUTIDE
     Dosage: 0.5 MG, QW
     Route: 058
     Dates: start: 202105

REACTIONS (10)
  - Herpes dermatitis [Not Recovered/Not Resolved]
  - Condition aggravated [Not Recovered/Not Resolved]
  - Back pain [Not Recovered/Not Resolved]
  - Chills [Unknown]
  - Fatigue [Not Recovered/Not Resolved]
  - Constipation [Not Recovered/Not Resolved]
  - Nausea [Unknown]
  - Abdominal pain [Unknown]
  - Injection site pain [Not Recovered/Not Resolved]
  - Recalled product administered [Unknown]

NARRATIVE: CASE EVENT DATE: 20210101
